FAERS Safety Report 26025192 (Version 1)
Quarter: 2025Q4

REPORT INFORMATION
  Report Type: Spontaneous
  Country: US (occurrence: US)
  Receive Date: 20251111
  Receipt Date: 20251111
  Transmission Date: 20260118
  Serious: No
  Sender: ROCHE
  Company Number: US-ROCHE-10000426210

PATIENT
  Sex: Female

DRUGS (3)
  1. XOLAIR PFS [Suspect]
     Active Substance: OMALIZUMAB
     Indication: Asthma
     Dosage: FORM STRENGTH: 150MG/ML
     Route: 058
     Dates: start: 202202
  2. XOLAIR PFS [Suspect]
     Active Substance: OMALIZUMAB
  3. INGREZZA [Concomitant]
     Active Substance: VALBENAZINE DITOSYLATE

REACTIONS (3)
  - Tremor [Unknown]
  - Muscular weakness [Unknown]
  - Fall [Unknown]
